FAERS Safety Report 8674442 (Version 2)
Quarter: 2013Q4

REPORT INFORMATION
  Report Type: Report from Study
  Country: RU (occurrence: RU)
  Receive Date: 20120720
  Receipt Date: 20131106
  Transmission Date: 20140711
  Serious: Yes (Other)
  Sender: FDA-Public Use
  Company Number: RU-009507513-1207RUS001095

PATIENT
  Age: 39 Year
  Sex: Male

DRUGS (3)
  1. RALTEGRAVIR POTASSIUM [Suspect]
     Indication: HIV INFECTION
     Dosage: 400 MG, BID
     Route: 048
     Dates: start: 20120207, end: 20120629
  2. KIVEXA [Concomitant]
  3. ACETAMINOPHEN [Concomitant]
     Dosage: UNK
     Dates: start: 20120615, end: 20120617

REACTIONS (1)
  - Hepatotoxicity [Not Recovered/Not Resolved]
